FAERS Safety Report 10743491 (Version 5)
Quarter: 2022Q3

REPORT INFORMATION
  Report Type: Spontaneous
  Country: FR (occurrence: FR)
  Receive Date: 20150128
  Receipt Date: 20220928
  Transmission Date: 20221027
  Serious: Yes (Hospitalization, Other)
  Sender: FDA-Public Use
  Company Number: PHHY2015FR007458

PATIENT
  Age: 9 Year
  Sex: Female

DRUGS (18)
  1. AMOXICILLIN\CLAVULANIC ACID [Suspect]
     Active Substance: AMOXICILLIN\CLAVULANIC ACID
     Indication: Staphylococcal abscess
     Dosage: UNK
     Route: 048
     Dates: start: 2012
  2. AMOXICILLIN\CLAVULANIC ACID [Suspect]
     Active Substance: AMOXICILLIN\CLAVULANIC ACID
     Indication: Pleurisy
  3. AMOXICILLIN\CLAVULANIC ACID [Suspect]
     Active Substance: AMOXICILLIN\CLAVULANIC ACID
     Indication: Pericarditis
  4. OXACILLIN [Suspect]
     Active Substance: OXACILLIN SODIUM
     Indication: Staphylococcal abscess
     Dosage: UNK
     Route: 065
     Dates: start: 2012
  5. OXACILLIN [Suspect]
     Active Substance: OXACILLIN SODIUM
     Indication: Pleurisy
  6. OXACILLIN [Suspect]
     Active Substance: OXACILLIN SODIUM
     Indication: Pericarditis
  7. AMIKACIN [Concomitant]
     Active Substance: AMIKACIN
     Indication: Staphylococcal abscess
     Dosage: UNK
     Route: 065
  8. AMIKACIN [Concomitant]
     Active Substance: AMIKACIN
     Indication: Pleurisy
  9. AMIKACIN [Concomitant]
     Active Substance: AMIKACIN
     Indication: Pericarditis
  10. CLINDAMYCIN PHOSPHATE [Concomitant]
     Active Substance: CLINDAMYCIN PHOSPHATE
     Indication: Staphylococcal abscess
     Dosage: UNK
     Route: 065
     Dates: start: 2012
  11. CLINDAMYCIN PHOSPHATE [Concomitant]
     Active Substance: CLINDAMYCIN PHOSPHATE
     Indication: Pleurisy
  12. CLINDAMYCIN PHOSPHATE [Concomitant]
     Active Substance: CLINDAMYCIN PHOSPHATE
     Indication: Pericarditis
  13. RIFAMPIN [Concomitant]
     Active Substance: RIFAMPIN
     Indication: Staphylococcal abscess
     Dosage: UNK
     Route: 048
     Dates: start: 2012
  14. RIFAMPIN [Concomitant]
     Active Substance: RIFAMPIN
     Indication: Pleurisy
  15. RIFAMPIN [Concomitant]
     Active Substance: RIFAMPIN
     Indication: Pericarditis
  16. COLCHICINE [Concomitant]
     Active Substance: COLCHICINE
     Indication: Staphylococcal abscess
     Dosage: UNK
     Route: 065
     Dates: start: 2012
  17. COLCHICINE [Concomitant]
     Active Substance: COLCHICINE
     Indication: Pleurisy
  18. COLCHICINE [Concomitant]
     Active Substance: COLCHICINE
     Indication: Pericarditis

REACTIONS (1)
  - Drug reaction with eosinophilia and systemic symptoms [Recovered/Resolved]

NARRATIVE: CASE EVENT DATE: 20120101
